FAERS Safety Report 18224725 (Version 1)
Quarter: 2020Q3

REPORT INFORMATION
  Report Type: Other
  Country: PA (occurrence: PA)
  Receive Date: 20200903
  Receipt Date: 20200903
  Transmission Date: 20201103
  Serious: Yes (Other)
  Sender: FDA-Public Use
  Company Number: PA-ROCHE-2667705

PATIENT
  Age: 53 Year
  Sex: Female

DRUGS (3)
  1. OMALIZUMAB. [Suspect]
     Active Substance: OMALIZUMAB
     Indication: URTICARIA CHRONIC
     Dosage: 300 MG/KG, QMO
     Route: 058
     Dates: start: 20170112
  2. OMALIZUMAB. [Suspect]
     Active Substance: OMALIZUMAB
     Indication: ANGIOEDEMA
     Dosage: 150 MG ((150MG (1 VIAL) MORE THAN NORMAL DOSE))
     Route: 058
     Dates: start: 20200513
  3. OMALIZUMAB. [Suspect]
     Active Substance: OMALIZUMAB
     Indication: CHRONIC SPONTANEOUS URTICARIA
     Route: 058
     Dates: start: 20160801

REACTIONS (7)
  - Asthma [Not Recovered/Not Resolved]
  - Headache [Recovering/Resolving]
  - Product dispensing error [Unknown]
  - Sinusitis [Recovering/Resolving]
  - Extra dose administered [Unknown]
  - Drug ineffective [Unknown]
  - Rhinitis allergic [Recovering/Resolving]

NARRATIVE: CASE EVENT DATE: 201911
